FAERS Safety Report 13647479 (Version 1)
Quarter: 2017Q2

REPORT INFORMATION
  Report Type: Spontaneous
  Country: US (occurrence: US)
  Receive Date: 20170613
  Receipt Date: 20170613
  Transmission Date: 20170830
  Serious: Yes (Hospitalization)
  Sender: FDA-Public Use
  Company Number: US-RISING PHARMACEUTICALS, INC.-2017RIS00119

PATIENT
  Age: 82 Year
  Sex: Male

DRUGS (1)
  1. CIPROFLOXACIN. [Suspect]
     Active Substance: CIPROFLOXACIN
     Dosage: 2 GTT, 3X/DAY
     Route: 001
     Dates: start: 20170515

REACTIONS (2)
  - Incorrect route of drug administration [Unknown]
  - Hospitalisation [Recovered/Resolved]

NARRATIVE: CASE EVENT DATE: 201705
